FAERS Safety Report 8401197-9 (Version None)
Quarter: 2012Q2

REPORT INFORMATION
  Report Type: 
  Country: None (occurrence: None)
  Receive Date: 20120601
  Receipt Date: 20120524
  Transmission Date: 20120825
  Serious: Yes (Life-Threatening, Other)
  Sender: FDA-Public Use
  Company Number: PHHY2012BR045965

PATIENT
  Sex: Female
  Weight: 70 kg

DRUGS (1)
  1. FORMOTEROL FUMARATE [Suspect]
     Indication: ASTHMA
     Dosage: 1 DF, QID

REACTIONS (10)
  - GAIT DISTURBANCE [None]
  - PYREXIA [None]
  - INCORRECT ROUTE OF DRUG ADMINISTRATION [None]
  - DYSPNOEA [None]
  - LUNG DISORDER [None]
  - FEELING ABNORMAL [None]
  - HEADACHE [None]
  - EXERCISE TOLERANCE DECREASED [None]
  - ASTHMA [None]
  - WRONG TECHNIQUE IN DRUG USAGE PROCESS [None]
